FAERS Safety Report 5781543-5 (Version None)
Quarter: 2008Q2

REPORT INFORMATION
  Report Type: 
  Country: None (occurrence: None)
  Receive Date: 20080623
  Receipt Date: 20080322
  Transmission Date: 20081010
  Serious: No
  Sender: FDA-Public Use
  Company Number: US-BAYER-200817738NA

PATIENT
  Age: 58 Year
  Sex: Male
  Weight: 66 kg

DRUGS (7)
  1. BETASERON [Suspect]
     Indication: RELAPSING-REMITTING MULTIPLE SCLEROSIS
     Dosage: TOTAL DAILY DOSE: 8 MIU
     Route: 058
     Dates: start: 20060801
  2. PREDNISONE TAB [Concomitant]
  3. SINGULAIR [Concomitant]
  4. IMITREX [Concomitant]
  5. METOPROLOL [Concomitant]
  6. FOSAMAX [Concomitant]
  7. LOPEDIUM TITRATE [Concomitant]

REACTIONS (2)
  - POOR QUALITY SLEEP [None]
  - TREMOR [None]
